FAERS Safety Report 19461896 (Version 1)
Quarter: 2021Q2

REPORT INFORMATION
  Report Type: Spontaneous
  Country: NZ (occurrence: NZ)
  Receive Date: 20210625
  Receipt Date: 20210625
  Transmission Date: 20210717
  Serious: Yes (Life-Threatening)
  Sender: FDA-Public Use
  Company Number: NZ-ELI_LILLY_AND_COMPANY-NZ202106008619

PATIENT
  Age: 30 Year
  Sex: Male

DRUGS (3)
  1. OLANZAPINE PAMOATE 300MG [Suspect]
     Active Substance: OLANZAPINE PAMOATE
     Indication: PARANOIA
     Dosage: 300 MG, UNKNOWN
     Route: 030
     Dates: start: 20210126
  2. OLANZAPINE PAMOATE 300MG [Suspect]
     Active Substance: OLANZAPINE PAMOATE
     Indication: PARANOIA
     Dosage: 300 MG, UNKNOWN
     Route: 030
     Dates: start: 20210126
  3. OLANZAPINE PAMOATE 300MG [Suspect]
     Active Substance: OLANZAPINE PAMOATE
     Indication: PARANOIA
     Dosage: 300 MG, UNKNOWN
     Route: 030
     Dates: start: 20210126

REACTIONS (3)
  - Post-injection delirium sedation syndrome [Not Recovered/Not Resolved]
  - Respiratory distress [Not Recovered/Not Resolved]
  - Tachycardia [Not Recovered/Not Resolved]

NARRATIVE: CASE EVENT DATE: 20210126
